FAERS Safety Report 18701717 (Version 2)
Quarter: 2021Q1

REPORT INFORMATION
  Report Type: Report from Study
  Country: US (occurrence: US)
  Receive Date: 20210105
  Receipt Date: 20210106
  Transmission Date: 20210419
  Serious: Yes (Hospitalization)
  Sender: FDA-Public Use
  Company Number: US-PFIZER INC-2020484400

PATIENT
  Age: 5 Year
  Sex: Female
  Weight: 26 kg

DRUGS (28)
  1. IOHEXOL [Concomitant]
     Active Substance: IOHEXOL
     Dosage: UNK
     Route: 065
  2. LACTATED RINGERS SOLUTION [Concomitant]
     Active Substance: CALCIUM CHLORIDE\POTASSIUM CHLORIDE\SODIUM CHLORIDE\SODIUM LACTATE
     Dosage: BOLUS
     Route: 065
  3. LANSOPRAZOLE. [Concomitant]
     Active Substance: LANSOPRAZOLE
     Dosage: 15 MILLIGRAM
     Route: 065
     Dates: start: 20200813
  4. ONDANSETRON [Concomitant]
     Active Substance: ONDANSETRON
     Dosage: UNK
     Route: 065
  5. MERCAPTOPURINE. [Concomitant]
     Active Substance: MERCAPTOPURINE
     Dosage: UNK
     Route: 065
     Dates: end: 202009
  6. CYTARABINE. [Suspect]
     Active Substance: CYTARABINE
     Dosage: UNK
  7. MACROGOL [Concomitant]
     Active Substance: POLYETHYLENE GLYCOLS
     Dosage: 8.5 GRAM
     Route: 065
     Dates: start: 20200813
  8. SENNA [SENNOSIDE A+B] [Concomitant]
     Active Substance: SENNOSIDES A AND B
     Dosage: 8.8 MILLIGRAM
     Route: 065
     Dates: start: 20200815
  9. CYTARABINE. [Suspect]
     Active Substance: CYTARABINE
     Dosage: 66 MILLIGRAM 1B PART 1 THERAPY
     Route: 065
     Dates: start: 20200923, end: 20200926
  10. AMLODIPINE [Concomitant]
     Active Substance: AMLODIPINE BESYLATE
     Dosage: 5 MILLIGRAM
     Route: 065
     Dates: start: 20200815
  11. CEFRIAXONE [Concomitant]
     Active Substance: CEFTRIAXONE
     Indication: URINARY TRACT INFECTION
     Dosage: UNK
     Route: 065
     Dates: start: 20200922
  12. FUROSEMIDE. [Concomitant]
     Active Substance: FUROSEMIDE
     Dosage: UNK
     Route: 065
  13. DEXAMETHASONE. [Concomitant]
     Active Substance: DEXAMETHASONE
     Dosage: 2.5 MILLIGRAM
     Route: 065
     Dates: start: 20200816
  14. PARACETAMOL [Concomitant]
     Active Substance: ACETAMINOPHEN
     Dosage: UNK
     Route: 065
  15. CEFEPIME [Concomitant]
     Active Substance: CEFEPIME HYDROCHLORIDE
     Dosage: 1250 MILLIGRAM
     Route: 065
     Dates: start: 20200810
  16. APIXABAN [Suspect]
     Active Substance: APIXABAN
     Indication: THROMBOSIS PROPHYLAXIS
     Dosage: 3 MILLIGRAM DAILY
     Route: 048
     Dates: start: 20200818, end: 20200913
  17. LORAZEPAM. [Concomitant]
     Active Substance: LORAZEPAM
     Dosage: UNK
     Route: 065
  18. CYCLOPHOSPHAMIDE. [Concomitant]
     Active Substance: CYCLOPHOSPHAMIDE
     Dosage: 880 MILLIGRAM
     Route: 065
     Dates: start: 20200916, end: 20200916
  19. CEFEPIME [Concomitant]
     Active Substance: CEFEPIME HYDROCHLORIDE
     Indication: URINARY TRACT INFECTION
     Dosage: TOTAL OF 5 DAYS
     Route: 065
     Dates: start: 202009
  20. SULFAMETHOXAZOLE+TRIMETHOPRIM [Concomitant]
     Active Substance: SULFAMETHOXAZOLE\TRIMETHOPRIM
     Dosage: UNK
     Route: 065
  21. SODIUM CHLORIDE. [Concomitant]
     Active Substance: SODIUM CHLORIDE
     Dosage: UNK
     Route: 042
  22. MIRALAX [Concomitant]
     Active Substance: POLYETHYLENE GLYCOL 3350
     Dosage: UNK
     Route: 065
  23. VINCRISTINE [Concomitant]
     Active Substance: VINCRISTINE
     Dosage: 1.3 MILLIGRAM
     Route: 065
     Dates: start: 20200908, end: 20200908
  24. CYTARABINE. [Suspect]
     Active Substance: CYTARABINE
     Dosage: 66 MILLIGRAM
     Route: 065
     Dates: start: 20200916, end: 20200919
  25. MICAFUNGIN. [Concomitant]
     Active Substance: MICAFUNGIN SODIUM
     Indication: INFECTION PROPHYLAXIS
     Dosage: FOR 3 DAYS
     Route: 065
     Dates: start: 202009
  26. KCL + NACL 0.9% [Concomitant]
     Dosage: UNK
     Route: 042
  27. METHOTREXATE. [Concomitant]
     Active Substance: METHOTREXATE
     Dosage: 12 MILLIGRAM
     Route: 065
     Dates: start: 20200916, end: 20200916
  28. VANCOMYCIN [Concomitant]
     Active Substance: VANCOMYCIN
     Indication: INFECTION PROPHYLAXIS
     Dosage: FOR 2 DAYS
     Route: 065
     Dates: start: 202009

REACTIONS (2)
  - Pneumonitis [Recovered/Resolved]
  - Pyrexia [Recovered/Resolved]

NARRATIVE: CASE EVENT DATE: 20200922
